FAERS Safety Report 6158903-6 (Version None)
Quarter: 2009Q2

REPORT INFORMATION
  Report Type: 
  Country: None (occurrence: None)
  Receive Date: 20090415
  Receipt Date: 20090402
  Transmission Date: 20091009
  Serious: Yes (Other)
  Sender: FDA-Public Use
  Company Number: 09-000538

PATIENT
  Age: 46 Year
  Sex: Female
  Weight: 73 kg

DRUGS (3)
  1. ESTRACE [Suspect]
     Indication: VULVOVAGINAL DRYNESS
     Dosage: 1 G, TID, VAGINAL
     Route: 067
     Dates: start: 20081001, end: 20081201
  2. ESTRACE [Suspect]
     Indication: VULVOVAGINAL DRYNESS
     Dosage: 2 MG, QD, ORAL
     Route: 048
     Dates: start: 20081101, end: 20090301
  3. CELEXA /00582602/ (CITALOPRAM HYDROBROMIDE) [Concomitant]

REACTIONS (6)
  - CRYING [None]
  - INFLUENZA [None]
  - NECK PAIN [None]
  - THROAT TIGHTNESS [None]
  - THYROID CYST [None]
  - WEIGHT DECREASED [None]
